FAERS Safety Report 24389949 (Version 2)
Quarter: 2024Q4

REPORT INFORMATION
  Report Type: Spontaneous
  Country: US (occurrence: US)
  Receive Date: 20241003
  Receipt Date: 20241226
  Transmission Date: 20250115
  Serious: No
  Sender: SANOFI AVENTIS
  Company Number: US-SA-2024SA278475

PATIENT
  Age: 42 Year
  Sex: Female

DRUGS (1)
  1. DUPIXENT [Suspect]
     Active Substance: DUPILUMAB
     Indication: Dermatitis atopic
     Dosage: 300 MG, QOW
     Route: 058
     Dates: start: 20240403, end: 2024

REACTIONS (13)
  - Urinary tract infection [Unknown]
  - Skin haemorrhage [Unknown]
  - Skin weeping [Unknown]
  - Skin fissures [Unknown]
  - Dry skin [Unknown]
  - Sleep disorder due to general medical condition, insomnia type [Unknown]
  - Skin exfoliation [Unknown]
  - Pruritus [Unknown]
  - Injection site swelling [Unknown]
  - Vomiting [Unknown]
  - Injection site erythema [Unknown]
  - Rash [Unknown]
  - Inappropriate schedule of product administration [Unknown]

NARRATIVE: CASE EVENT DATE: 20240101
